FAERS Safety Report 10014846 (Version 1)
Quarter: 2014Q1

REPORT INFORMATION
  Report Type: Spontaneous
  Country: ES (occurrence: ES)
  Receive Date: 20140317
  Receipt Date: 20140317
  Transmission Date: 20141002
  Serious: Yes (Life-Threatening, Hospitalization)
  Sender: FDA-Public Use
  Company Number: ES-ASTRAZENECA-2014SE18158

PATIENT
  Age: 34 Year
  Sex: Female

DRUGS (5)
  1. SEROQUEL PROLONG [Suspect]
     Indication: SUICIDE ATTEMPT
     Dosage: 25 TABLETS OF SEROQUEL PROLONG 200 MG
     Route: 048
     Dates: start: 20140102, end: 20140102
  2. CLONAZEPAM [Concomitant]
     Dosage: ONE TABLET (2 MG)/DAILY AS REQUIRED. LATENCY: YEARS
     Route: 048
     Dates: end: 20140102
  3. GABAPENTIN [Concomitant]
     Route: 048
     Dates: end: 20140102
  4. LORMETAZEPAM [Concomitant]
     Route: 048
     Dates: end: 20140102
  5. DISULFIRAM [Concomitant]
     Route: 048
     Dates: end: 20140102

REACTIONS (4)
  - Intentional overdose [Unknown]
  - Suicide attempt [Unknown]
  - Affect lability [Unknown]
  - Somnolence [Unknown]
